FAERS Safety Report 16709111 (Version 1)
Quarter: 2019Q3

REPORT INFORMATION
  Report Type: Spontaneous
  Country: US (occurrence: US)
  Receive Date: 20190816
  Receipt Date: 20190816
  Transmission Date: 20191004
  Serious: Yes (Other)
  Sender: FDA-Public Use
  Company Number: US-SUN PHARMACEUTICAL INDUSTRIES LTD-2019R1-196041

PATIENT
  Age: 45 Year
  Sex: Male

DRUGS (2)
  1. DOXYCYCLINE. [Suspect]
     Active Substance: DOXYCYCLINE
     Indication: PROTOTHECOSIS
     Dosage: 100 MILLIGRAM, BID
     Route: 048
  2. AMPHOTERICIN B LIPOSOME [Suspect]
     Active Substance: AMPHOTERICIN B
     Indication: PROTOTHECOSIS
     Dosage: UNK
     Route: 042

REACTIONS (2)
  - Therapy cessation [Unknown]
  - Treatment noncompliance [Unknown]
